FAERS Safety Report 11330904 (Version 3)
Quarter: 2021Q1

REPORT INFORMATION
  Report Type: Other
  Country: CA (occurrence: CA)
  Receive Date: 20150803
  Receipt Date: 20210208
  Transmission Date: 20210419
  Serious: Yes (Other)
  Sender: FDA-Public Use
  Company Number: CA-ROCHE-1226044

PATIENT
  Age: 60 Year
  Sex: Male
  Weight: 67 kg

DRUGS (18)
  1. RITUXAN [Suspect]
     Active Substance: RITUXIMAB
     Indication: RHEUMATOID ARTHRITIS
     Dosage: PREVIOUS DOSE: 25/AUG/2011
     Route: 042
     Dates: start: 20110811, end: 20200825
  2. XELJANZ [Suspect]
     Active Substance: TOFACITINIB CITRATE
     Indication: PRODUCT USED FOR UNKNOWN INDICATION
     Route: 065
  3. DIPHENHYDRAMINE HCL [Concomitant]
     Active Substance: DIPHENHYDRAMINE HYDROCHLORIDE
     Indication: PREMEDICATION
     Route: 048
     Dates: start: 20110811
  4. EMTEC [Concomitant]
     Active Substance: ACETAMINOPHEN\CODEINE PHOSPHATE
  5. METHYLPREDNISOLONE. [Concomitant]
     Active Substance: METHYLPREDNISOLONE
     Indication: PREMEDICATION
     Route: 042
     Dates: start: 20110811
  6. ZOMIG [Concomitant]
     Active Substance: ZOLMITRIPTAN
     Indication: HEADACHE
  7. OMEGA 3?6?9 [Concomitant]
     Active Substance: FISH OIL
  8. ARTHROTEC [Concomitant]
     Active Substance: DICLOFENAC SODIUM\MISOPROSTOL
  9. FOLIC ACID. [Concomitant]
     Active Substance: FOLIC ACID
  10. VITAMIN C [Concomitant]
     Active Substance: ASCORBIC ACID
  11. RITUXAN [Suspect]
     Active Substance: RITUXIMAB
     Dosage: PREVIOUS DOSE: 25/AUG/2011
     Route: 042
     Dates: start: 20130603, end: 20130620
  12. SIMPONI [Suspect]
     Active Substance: GOLIMUMAB
     Indication: PRODUCT USED FOR UNKNOWN INDICATION
     Route: 065
  13. PREDNISONE. [Concomitant]
     Active Substance: PREDNISONE
  14. PANTOLOC [Concomitant]
     Active Substance: PANTOPRAZOLE SODIUM
  15. METHOTREXATE. [Concomitant]
     Active Substance: METHOTREXATE
  16. CITALOPRAM [Concomitant]
     Active Substance: CITALOPRAM HYDROBROMIDE
  17. CLONAZEPAM. [Concomitant]
     Active Substance: CLONAZEPAM
  18. ACETAMINOPHEN. [Concomitant]
     Active Substance: ACETAMINOPHEN
     Indication: PREMEDICATION
     Route: 048
     Dates: start: 20110811

REACTIONS (15)
  - Allergy to metals [Unknown]
  - Vasculitis [Unknown]
  - Arthropathy [Unknown]
  - Gastrooesophageal reflux disease [Unknown]
  - Pelvic fracture [Recovering/Resolving]
  - Rheumatoid arthritis [Not Recovered/Not Resolved]
  - Fall [Unknown]
  - Inguinal hernia [Unknown]
  - Drug ineffective [Unknown]
  - Hypertension [Unknown]
  - Cerebrovascular accident [Unknown]
  - Depression [Not Recovered/Not Resolved]
  - Herpes zoster [Unknown]
  - Abdominal hernia [Unknown]
  - Ill-defined disorder [Unknown]

NARRATIVE: CASE EVENT DATE: 20161108
